FAERS Safety Report 4518197-1 (Version None)
Quarter: 2004Q4

REPORT INFORMATION
  Report Type: 
  Country: None (occurrence: None)
  Receive Date: 20041130
  Receipt Date: 20041115
  Transmission Date: 20050328
  Serious: Yes (Hospitalization)
  Sender: FDA-Public Use
  Company Number: US_0411108151

PATIENT
  Age: 50 Year
  Sex: Female
  Weight: 75 kg

DRUGS (2)
  1. HUMALOG [Suspect]
     Dosage: 70 U DAY
     Dates: start: 19990101
  2. SYNTHROID [Concomitant]

REACTIONS (8)
  - ABASIA [None]
  - BENIGN NEOPLASM OF ADRENAL GLAND [None]
  - DYSPNOEA [None]
  - HYPOTHYROIDISM [None]
  - NASOPHARYNGITIS [None]
  - PNEUMONIA MYCOPLASMAL [None]
  - SINUSITIS [None]
  - WEIGHT INCREASED [None]
